FAERS Safety Report 7649760-7 (Version None)
Quarter: 2011Q3

REPORT INFORMATION
  Report Type: 
  Country: None (occurrence: None)
  Receive Date: 20110802
  Receipt Date: 20110720
  Transmission Date: 20111222
  Serious: Yes (Hospitalization, Other)
  Sender: FDA-Public Use
  Company Number: CH-ELI_LILLY_AND_COMPANY-CH201107006126

PATIENT
  Age: 58 Year
  Sex: Female

DRUGS (7)
  1. FLUOXETINE HYDROCHLORIDE [Suspect]
     Dosage: 40 MG, QD
     Route: 048
     Dates: start: 20011228, end: 20011229
  2. LAMICTAL [Concomitant]
     Dosage: 50 MG, QD
     Route: 048
     Dates: start: 20011214, end: 20020129
  3. FLUOXETINE HYDROCHLORIDE [Suspect]
     Dosage: 60 MG, QD
     Route: 048
     Dates: start: 20011101, end: 20011227
  4. SURMONTIL [Concomitant]
     Dosage: 50 MG, QD
     Route: 048
     Dates: start: 20011212
  5. LAMICTAL [Concomitant]
     Dosage: 75 MG, QD
     Route: 048
     Dates: start: 20010130
  6. FLUOXETINE HYDROCHLORIDE [Suspect]
     Dosage: 20 MG, QD
     Route: 048
     Dates: start: 20011230, end: 20020103
  7. LEVOTHYROXINE SODIUM [Concomitant]
     Dosage: 0.1 MG, QD
     Route: 048

REACTIONS (3)
  - ELECTROCARDIOGRAM QT PROLONGED [None]
  - POTENTIATING DRUG INTERACTION [None]
  - HOSPITALISATION [None]
